FAERS Safety Report 5760355-2 (Version None)
Quarter: 2008Q2

REPORT INFORMATION
  Report Type: 
  Country: None (occurrence: None)
  Receive Date: 20080605
  Receipt Date: 20080527
  Transmission Date: 20081010
  Serious: Yes (Hospitalization)
  Sender: FDA-Public Use
  Company Number: US-MERCK-0804USA04966

PATIENT
  Age: 14 Year
  Sex: Female
  Weight: 54 kg

DRUGS (3)
  1. SINGULAIR [Suspect]
     Indication: HYPERSENSITIVITY
     Route: 048
     Dates: start: 20080416, end: 20080417
  2. SINGULAIR [Suspect]
     Indication: BRONCHIAL HYPERREACTIVITY
     Route: 048
     Dates: start: 20080416, end: 20080417
  3. ADVAIR DISKUS 100/50 [Concomitant]
     Indication: BRONCHIAL HYPERREACTIVITY
     Dates: start: 20080416

REACTIONS (5)
  - DIZZINESS [None]
  - HEADACHE [None]
  - MALAISE [None]
  - MIGRAINE [None]
  - PYREXIA [None]
